FAERS Safety Report 4924301-3 (Version None)
Quarter: 2006Q1

REPORT INFORMATION
  Report Type: 
  Country: None (occurrence: None)
  Receive Date: 20060227
  Receipt Date: 20060105
  Transmission Date: 20060701
  Serious: No
  Sender: FDA-Public Use
  Company Number: US-GLAXOSMITHKLINE-A0587966A

PATIENT
  Age: 38 Year
  Sex: Female

DRUGS (8)
  1. WELLBUTRIN XL [Suspect]
     Indication: DEPRESSION
     Dosage: 300MG PER DAY
     Route: 048
     Dates: start: 20051001, end: 20051222
  2. LEXAPRO [Concomitant]
  3. TOPAMAX [Concomitant]
  4. KLONOPIN [Concomitant]
  5. BISOPROLOL [Concomitant]
  6. SYNTHROID [Concomitant]
  7. ULTRAM [Concomitant]
  8. AMBIEN [Concomitant]

REACTIONS (5)
  - ANXIETY [None]
  - NERVOUSNESS [None]
  - PARAESTHESIA [None]
  - RASH [None]
  - URTICARIA [None]
